FAERS Safety Report 7246452-3 (Version None)
Quarter: 2011Q1

REPORT INFORMATION
  Report Type: 
  Country: None (occurrence: None)
  Receive Date: 20110126
  Receipt Date: 20110117
  Transmission Date: 20110831
  Serious: Yes (Death)
  Sender: FDA-Public Use
  Company Number: FR-GENENTECH-312720

PATIENT
  Sex: Female
  Weight: 60 kg

DRUGS (16)
  1. RITUXIMAB [Suspect]
     Indication: ACUTE LYMPHOCYTIC LEUKAEMIA
     Dosage: 375 MG/M2, UNK
     Route: 065
     Dates: start: 20091120
  2. ETOPOSIDE [Suspect]
     Indication: ACUTE LYMPHOCYTIC LEUKAEMIA
     Dosage: 75 MG/M2, UNK
     Route: 065
     Dates: start: 20091221, end: 20091222
  3. FOLINIC ACID [Suspect]
     Indication: ACUTE LYMPHOCYTIC LEUKAEMIA
     Dosage: UNK
     Route: 065
  4. MERCAPTOPURINE [Suspect]
     Indication: ACUTE LYMPHOCYTIC LEUKAEMIA
     Dosage: 60 MG/M2, BID
     Route: 048
     Dates: start: 20091207, end: 20091213
  5. LENOGRASTIM [Concomitant]
     Dosage: UNK
     Route: 058
     Dates: start: 20091215, end: 20091220
  6. CYTARABINE [Suspect]
     Indication: ACUTE LYMPHOCYTIC LEUKAEMIA
     Dosage: 2 G/M2, BID
     Route: 065
  7. L-ASPARAGINASE [Suspect]
     Dosage: DOSE: 10000 UI/M2 ON DAY 16, I.E 17200 UI/DAY
     Route: 042
     Dates: start: 20091208
  8. LENOGRASTIM [Concomitant]
     Indication: PRODUCT USED FOR UNKNOWN INDICATION
     Dosage: START : DAY 13
     Route: 058
  9. VINCRISTINE [Suspect]
     Indication: ACUTE LYMPHOCYTIC LEUKAEMIA
     Dosage: 2 MG, UNK
     Route: 065
     Dates: start: 20091207
  10. CYCLOPHOSPHAMIDE [Suspect]
     Indication: ACUTE LYMPHOCYTIC LEUKAEMIA
     Dosage: 500 MG/M2, UNK
     Route: 042
     Dates: start: 20091221, end: 20091222
  11. L-ASPARAGINASE [Suspect]
     Indication: ACUTE LYMPHOCYTIC LEUKAEMIA
     Dosage: UNK
     Route: 042
  12. DEXAMETHASONE [Suspect]
     Indication: ACUTE LYMPHOCYTIC LEUKAEMIA
     Dosage: 10 MG, UNK
     Route: 065
  13. METHOTREXATE [Suspect]
     Indication: ACUTE LYMPHOCYTIC LEUKAEMIA
     Dosage: 5100 MG/HR, UNK
     Route: 042
     Dates: start: 20091207
  14. LENOGRASTIM [Concomitant]
     Dosage: UNK
     Route: 058
     Dates: start: 20091224
  15. RITUXIMAB [Suspect]
     Dosage: 375 MG/M2, UNK
     Route: 065
     Dates: start: 20091221
  16. METHOTREXATE [Suspect]
     Dosage: ON DAY 29
     Route: 042
     Dates: start: 20091221

REACTIONS (1)
  - MULTI-ORGAN FAILURE [None]
